FAERS Safety Report 4438398-0 (Version None)
Quarter: 2004Q3

REPORT INFORMATION
  Report Type: 
  Country: None (occurrence: None)
  Receive Date: 20040831
  Receipt Date: 20040723
  Transmission Date: 20050211
  Serious: Yes (Other)
  Sender: FDA-Public Use
  Company Number: US-GLAXOSMITHKLINE-A0521834A

PATIENT
  Sex: Female

DRUGS (3)
  1. WELLBUTRIN [Suspect]
     Route: 048
  2. GEODON [Concomitant]
  3. TEMAZEPAM [Concomitant]

REACTIONS (1)
  - CONVULSION [None]
